FAERS Safety Report 16997647 (Version 1)
Quarter: 2019Q4

REPORT INFORMATION
  Report Type: Spontaneous
  Country: GB (occurrence: GB)
  Receive Date: 20191106
  Receipt Date: 20191106
  Transmission Date: 20200122
  Serious: Yes (Disabling)
  Sender: FDA-Public Use
  Company Number: GB-AUROBINDO-AUR-APL-2019-070356

PATIENT
  Age: 86 Year
  Sex: Male

DRUGS (1)
  1. FINASTERIDE. [Suspect]
     Active Substance: FINASTERIDE
     Indication: BENIGN PROSTATIC HYPERPLASIA
     Dosage: UNK
     Route: 048
     Dates: start: 2015, end: 20191011

REACTIONS (2)
  - Depression [Recovering/Resolving]
  - Psychotic disorder [Recovering/Resolving]

NARRATIVE: CASE EVENT DATE: 2015
